FAERS Safety Report 9877797 (Version 1)
Quarter: 2014Q1

REPORT INFORMATION
  Report Type: Spontaneous
  Country: US (occurrence: None)
  Receive Date: 20140204
  Receipt Date: 20140204
  Transmission Date: 20141002
  Serious: Yes (Other)
  Sender: FDA-Public Use
  Company Number: PI-10108

PATIENT
  Sex: Male

DRUGS (1)
  1. CHLORAPREP [Suspect]
     Indication: PREOPERATIVE CARE
     Dosage: UNKNOWN, ONCE, TOPICAL
     Route: 061
     Dates: start: 20140101

REACTIONS (4)
  - Skin disorder [None]
  - Respiratory failure [None]
  - Intraventricular haemorrhage [None]
  - Chemical injury [None]
